FAERS Safety Report 18857261 (Version 2)
Quarter: 2021Q1

REPORT INFORMATION
  Report Type: Spontaneous
  Country: US (occurrence: US)
  Receive Date: 20210208
  Receipt Date: 20210303
  Transmission Date: 20210420
  Serious: No
  Sender: FDA-Public Use
  Company Number: US-BEH-2021128103

PATIENT
  Age: 55 Year
  Sex: Female

DRUGS (1)
  1. HIZENTRA [Suspect]
     Active Substance: HUMAN IMMUNOGLOBULIN G
     Indication: HUMORAL IMMUNE DEFECT
     Dosage: 24 GRAM, QOW
     Route: 058
     Dates: start: 20201114

REACTIONS (7)
  - Dermatitis contact [Unknown]
  - Illness [Unknown]
  - Peripheral swelling [Unknown]
  - Chest discomfort [Recovered/Resolved]
  - Infection [Unknown]
  - Pain [Unknown]
  - Headache [Unknown]
